FAERS Safety Report 14369592 (Version 1)
Quarter: 2018Q1

REPORT INFORMATION
  Report Type: Spontaneous
  Country: US (occurrence: US)
  Receive Date: 20180110
  Receipt Date: 20180110
  Transmission Date: 20180509
  Serious: Yes (Other)
  Sender: FDA-Public Use
  Company Number: US-JNJFOC-20171236584

PATIENT
  Sex: Female
  Weight: 79.38 kg

DRUGS (2)
  1. CODEINE [Concomitant]
     Active Substance: CODEINE
     Indication: LIMB INJURY
     Route: 065
  2. JOHNSONS BABY PURE CORNSTARCH MEDICATED [Suspect]
     Active Substance: ZINC OXIDE
     Indication: PRODUCT USED FOR UNKNOWN INDICATION
     Dosage: AT LEAST TWICE A DAY ALL OVER BODY TO HELP WITH THE IRRITATED AREA OF SKIN
     Route: 061
     Dates: start: 2010

REACTIONS (1)
  - Endometriosis [Not Recovered/Not Resolved]
